FAERS Safety Report 6668883-2 (Version None)
Quarter: 2010Q2

REPORT INFORMATION
  Report Type: 
  Country: None (occurrence: None)
  Receive Date: 20100406
  Receipt Date: 20100329
  Transmission Date: 20101027
  Serious: Yes (Other)
  Sender: FDA-Public Use
  Company Number: IT-ROCHE-693696

PATIENT
  Age: 64 Year
  Sex: Male

DRUGS (3)
  1. AVASTIN [Suspect]
     Indication: LUNG ADENOCARCINOMA
     Dosage: DOSE: 7.5 MG/KG
     Route: 065
     Dates: end: 20090301
  2. CISPLATIN [Concomitant]
     Dosage: DOSE: 75 MG/MQ
  3. GEMCITABINE HCL [Concomitant]
     Dosage: DOSE: 1250 MG/MQ

REACTIONS (1)
  - OSTEONECROSIS [None]
